FAERS Safety Report 4569353-8 (Version None)
Quarter: 2005Q1

REPORT INFORMATION
  Report Type: 
  Country: None (occurrence: None)
  Receive Date: 20050203
  Receipt Date: 20050202
  Transmission Date: 20050727
  Serious: Yes (Hospitalization)
  Sender: FDA-Public Use
  Company Number: FR-GLAXOSMITHKLINE-B0369619A

PATIENT
  Age: 72 Year
  Sex: Female
  Weight: 65 kg

DRUGS (2)
  1. CLAMOXYL [Suspect]
     Indication: ILL-DEFINED DISORDER
     Dosage: 1G THREE TIMES PER DAY
     Route: 042
     Dates: start: 20041207, end: 20041209
  2. ROCEPHIN [Suspect]
     Dosage: 1G PER DAY
     Route: 042
     Dates: start: 20041204, end: 20041207

REACTIONS (4)
  - DERMATITIS BULLOUS [None]
  - ERYTHEMA [None]
  - MUCOCUTANEOUS RASH [None]
  - SKIN DISORDER [None]
